FAERS Safety Report 15826411 (Version 2)
Quarter: 2019Q1

REPORT INFORMATION
  Report Type: Spontaneous
  Country: DE (occurrence: DE)
  Receive Date: 20190115
  Receipt Date: 20190208
  Transmission Date: 20190417
  Serious: Yes (Hospitalization, Other)
  Sender: FDA-Public Use
  Company Number: DE-MYLANLABS-2019M1002664

PATIENT
  Age: 29 Year
  Sex: Male

DRUGS (14)
  1. PIPAMPERON [Suspect]
     Active Substance: PIPAMPERONE HYDROCHLORIDE
     Dosage: 40 MILLIGRAM, QD
     Route: 048
     Dates: start: 20170519
  2. PIPAMPERON [Suspect]
     Active Substance: PIPAMPERONE HYDROCHLORIDE
     Indication: PRODUCT USED FOR UNKNOWN INDICATION
     Dosage: 80 MILLIGRAM, QD (DOSAGE FORM: UNSPECIFIED)
     Route: 048
     Dates: start: 20170515, end: 20170517
  3. RISPERIDONE. [Suspect]
     Active Substance: RISPERIDONE
     Indication: ABNORMAL BEHAVIOUR
     Dosage: UNK (DOSAGE FORM: UNSPECIFIED, 0.5-1 MG)
     Route: 048
     Dates: start: 20170412, end: 20170419
  4. MIRTAZAPINE. [Suspect]
     Active Substance: MIRTAZAPINE
     Indication: PRODUCT USED FOR UNKNOWN INDICATION
     Dosage: 15 MILLIGRAM, QD (DOSAGE FORM: UNKNOWN)
     Route: 048
     Dates: start: 20170609, end: 20170611
  5. MIRTAZAPINE. [Suspect]
     Active Substance: MIRTAZAPINE
     Dosage: 45 MILLIGRAM, QD
     Route: 048
     Dates: start: 20170515, end: 20170517
  6. RISPERIDONE. [Suspect]
     Active Substance: RISPERIDONE
     Indication: MENTAL DISORDER
     Dosage: 1 MILLIGRAM
     Route: 048
     Dates: start: 20170420, end: 20170423
  7. PIPAMPERON [Suspect]
     Active Substance: PIPAMPERONE HYDROCHLORIDE
     Dosage: 60 MILLIGRAM, QD
     Route: 048
     Dates: start: 20170518
  8. RISPERIDONE. [Suspect]
     Active Substance: RISPERIDONE
     Dosage: 6 MILLIGRAM, QD
     Route: 048
     Dates: start: 20170426
  9. LORAZEPAM. [Concomitant]
     Active Substance: LORAZEPAM
     Dosage: UNK UNK, QD (DOSAGE FORM: UNSPECIFIED, 0.5 - 3 MG)
     Route: 048
     Dates: start: 20170424, end: 20170604
  10. RISPERIDONE. [Suspect]
     Active Substance: RISPERIDONE
     Dosage: UNK (DOSAGE FORM: UNSPECIFIED, 3-4 MG)
     Route: 048
     Dates: start: 20170424, end: 20170425
  11. MIRTAZAPINE. [Suspect]
     Active Substance: MIRTAZAPINE
     Dosage: 30 MILLIGRAM, QD
     Route: 048
     Dates: start: 20170331, end: 20170514
  12. MIRTAZAPINE. [Suspect]
     Active Substance: MIRTAZAPINE
     Dosage: 30 MILLIGRAM, QD
     Route: 048
     Dates: start: 20170518, end: 20170608
  13. PIPAMPERON [Suspect]
     Active Substance: PIPAMPERONE HYDROCHLORIDE
     Dosage: 100 MILLIGRAM, QD
     Route: 048
     Dates: start: 20170513, end: 20170514
  14. PIPAMPERON [Suspect]
     Active Substance: PIPAMPERONE HYDROCHLORIDE
     Dosage: 120 MILLIGRAM, QD
     Route: 048
     Dates: start: 20170503, end: 20170512

REACTIONS (5)
  - Off label use [Unknown]
  - Liver function test increased [Recovered/Resolved]
  - Drug dependence [Unknown]
  - Hepatic enzyme increased [Recovered/Resolved]
  - Product use in unapproved indication [Unknown]

NARRATIVE: CASE EVENT DATE: 20170412
